FAERS Safety Report 5344050-X (Version None)
Quarter: 2007Q2

REPORT INFORMATION
  Report Type: 
  Country: None (occurrence: None)
  Receive Date: 20070604
  Receipt Date: 20070531
  Transmission Date: 20071010
  Serious: Yes (Hospitalization)
  Sender: FDA-Public Use
  Company Number: A0653697A

PATIENT
  Sex: Female

DRUGS (3)
  1. AVANDIA [Suspect]
     Dosage: 1TAB PER DAY
     Route: 048
  2. ACTOS [Suspect]
     Route: 048
  3. JANUVIA [Concomitant]

REACTIONS (3)
  - AMNESIA [None]
  - CARDIAC FAILURE [None]
  - MYOCARDIAL INFARCTION [None]
